FAERS Safety Report 9375235 (Version 1)
Quarter: 2013Q2

REPORT INFORMATION
  Report Type: Spontaneous
  Country: US (occurrence: US)
  Receive Date: 20130628
  Receipt Date: 20130628
  Transmission Date: 20140414
  Serious: No
  Sender: FDA-Public Use
  Company Number: US-009507513-1306USA008762

PATIENT
  Age: 77 Year
  Sex: Female

DRUGS (2)
  1. STROMECTOL [Suspect]
     Indication: ACARODERMATITIS
     Dosage: 3 PILLS
     Route: 048
     Dates: start: 201302
  2. STROMECTOL [Suspect]
     Indication: SKIN DISORDER

REACTIONS (3)
  - Skin irritation [Unknown]
  - Pruritus [Unknown]
  - Drug ineffective [Unknown]
